FAERS Safety Report 4883883-0 (Version None)
Quarter: 2006Q1

REPORT INFORMATION
  Report Type: 
  Country: None (occurrence: None)
  Receive Date: 20060113
  Receipt Date: 20050916
  Transmission Date: 20060701
  Serious: Yes (Hospitalization)
  Sender: FDA-Public Use
  Company Number: 2005BI017642

PATIENT
  Age: 56 Year
  Sex: Female
  Weight: 60.782 kg

DRUGS (2)
  1. AVONEX [Suspect]
     Indication: MULTIPLE SCLEROSIS
     Dosage: 30 UG; QW; IM
     Route: 030
  2. AVONEX [Suspect]
     Indication: MULTIPLE SCLEROSIS
     Dosage: 30 UG; QW; IM
     Route: 030

REACTIONS (8)
  - HYPERTHYROIDISM [None]
  - HYSTERECTOMY [None]
  - LUNG INFECTION [None]
  - PAIN [None]
  - PULMONARY OEDEMA [None]
  - RENAL CELL CARCINOMA STAGE UNSPECIFIED [None]
  - VOMITING [None]
  - WEIGHT DECREASED [None]
